FAERS Safety Report 7285981-3 (Version None)
Quarter: 2011Q1

REPORT INFORMATION
  Report Type: 
  Country: None (occurrence: None)
  Receive Date: 20110210
  Receipt Date: 20110128
  Transmission Date: 20110831
  Serious: Yes (Death, Congenital Anomaly)
  Sender: FDA-Public Use
  Company Number: FR-PFIZER INC-2011029215

PATIENT

DRUGS (3)
  1. ATARAX [Suspect]
     Dosage: 25 MG OR 50 MG WEEKLY
     Route: 064
     Dates: start: 20090515, end: 20091001
  2. LIDOCAINE [Suspect]
     Dosage: 0.5 DF QOD, DRUG PLASTER
     Route: 064
     Dates: start: 20090515, end: 20091001
  3. ESCITALOPRAM OXALATE [Suspect]
     Dosage: UNK
     Route: 064
     Dates: start: 20090501, end: 20090501

REACTIONS (4)
  - DRUG EXPOSURE DURING PREGNANCY [None]
  - CONGENITAL FOOT MALFORMATION [None]
  - SPINA BIFIDA [None]
  - ARNOLD-CHIARI MALFORMATION [None]
